FAERS Safety Report 11586194 (Version 1)
Quarter: 2015Q3

REPORT INFORMATION
  Report Type: Spontaneous
  Country: US (occurrence: US)
  Receive Date: 20150916
  Receipt Date: 20150916
  Transmission Date: 20151125
  Serious: Yes (Other)
  Sender: FDA-Public Use
  Company Number: US-ELI_LILLY_AND_COMPANY-US200803004231

PATIENT
  Age: 64 Year
  Sex: Female
  Weight: 56.69 kg

DRUGS (5)
  1. CALCIUM [Concomitant]
     Active Substance: CALCIUM
     Dosage: 600 MG, 2/D
     Dates: end: 200802
  2. VITAMIN D [Concomitant]
     Active Substance: CHOLECALCIFEROL
     Dosage: 1000 U, DAILY (1/D)
     Dates: end: 200802
  3. VITAMIN D [Concomitant]
     Active Substance: CHOLECALCIFEROL
     Dosage: 10000 U X 5
     Dates: start: 20080414
  4. BONIVA [Concomitant]
     Active Substance: IBANDRONATE SODIUM
     Dosage: 150 UNK, MONTHLY (1/M)
     Dates: start: 20080401
  5. FORTEO [Suspect]
     Active Substance: TERIPARATIDE
     Indication: OSTEOPOROSIS
     Dosage: 20 UG, DAILY (1/D)
     Dates: start: 200701, end: 200801

REACTIONS (4)
  - Headache [Unknown]
  - Hypercalcaemia [Recovered/Resolved]
  - Hyperparathyroidism primary [Not Recovered/Not Resolved]
  - Polyuria [Unknown]

NARRATIVE: CASE EVENT DATE: 2008
